FAERS Safety Report 9993425 (Version 1)
Quarter: 2014Q1

REPORT INFORMATION
  Report Type: Spontaneous
  Country: IN (occurrence: IN)
  Receive Date: 20140310
  Receipt Date: 20140310
  Transmission Date: 20141002
  Serious: Yes (Other)
  Sender: FDA-Public Use
  Company Number: PHHY2014IN024928

PATIENT
  Age: 31 Year
  Sex: Male

DRUGS (3)
  1. CICLOSPORIN [Suspect]
     Indication: IMMUNOSUPPRESSION
  2. PREDNISOLONE [Suspect]
     Indication: IMMUNOSUPPRESSION
  3. AZATHIOPRINE [Suspect]
     Indication: IMMUNOSUPPRESSION

REACTIONS (9)
  - Post transplant lymphoproliferative disorder [Unknown]
  - B-cell lymphoma [Unknown]
  - Obstruction gastric [Unknown]
  - Mass [Unknown]
  - Abdominal pain [Unknown]
  - Vomiting [Unknown]
  - Decreased appetite [Unknown]
  - Abdominal mass [Unknown]
  - Anaemia [Unknown]
